FAERS Safety Report 18288506 (Version 1)
Quarter: 2020Q3

REPORT INFORMATION
  Report Type: Spontaneous
  Country: JP (occurrence: JP)
  Receive Date: 20200921
  Receipt Date: 20200921
  Transmission Date: 20201103
  Serious: Yes (Death)
  Sender: FDA-Public Use
  Company Number: JP-BIOCRYST PHARMACEUTICALS, INC.-2020BCR00073

PATIENT
  Sex: Female

DRUGS (3)
  1. PERAMIVIR [Suspect]
     Active Substance: PERAMIVIR
     Dosage: 600 MG
     Route: 065
     Dates: start: 20160307, end: 20160311
  2. PERAMIVIR [Suspect]
     Active Substance: PERAMIVIR
     Dosage: 600 MG
     Route: 065
     Dates: start: 20160328, end: 20160401
  3. PERAMIVIR [Suspect]
     Active Substance: PERAMIVIR
     Indication: INFLUENZA
     Dosage: 600 MG
     Route: 065
     Dates: start: 20160226, end: 20160301

REACTIONS (4)
  - Pulmonary alveolar haemorrhage [Fatal]
  - Drug resistance [Not Recovered/Not Resolved]
  - Drug ineffective [Not Recovered/Not Resolved]
  - Pneumonia [Fatal]
